FAERS Safety Report 13444995 (Version 3)
Quarter: 2017Q2

REPORT INFORMATION
  Report Type: Report from Study
  Country: US (occurrence: US)
  Receive Date: 20170414
  Receipt Date: 20170511
  Transmission Date: 20170830
  Serious: Yes (Hospitalization, Other)
  Sender: FDA-Public Use
  Company Number: US-SAOL THERAPEUTICS-2017SAO00683

PATIENT
  Age: 60 Year
  Sex: Female

DRUGS (12)
  1. CLONAZEPAM. [Concomitant]
     Active Substance: CLONAZEPAM
     Dosage: 0.125 MG, 2X/DAY
     Route: 048
  2. SERTRALINE HCL [Concomitant]
     Active Substance: SERTRALINE HYDROCHLORIDE
     Dosage: 100 MG, 2X/DAY
     Route: 048
  3. JEVANTIQUE LO [Concomitant]
     Active Substance: ETHINYL ESTRADIOL\NORETHINDRONE ACETATE
     Dosage: 1 TABLETS, 1X/DAY
     Route: 048
  4. MYRBETRIQ [Concomitant]
     Active Substance: MIRABEGRON
     Dosage: 50 MG, 1X/DAY
     Route: 048
  5. CLONAZEPAM. [Concomitant]
     Active Substance: CLONAZEPAM
     Dosage: 0.5 MG, 1X/DAY
     Route: 048
  6. LIORESAL [Suspect]
     Active Substance: BACLOFEN
     Dosage: 330.5 ?G, \DAY
     Dates: end: 20170404
  7. GABLOFEN [Suspect]
     Active Substance: BACLOFEN
     Dosage: 429.9 ?G, \DAY
     Dates: start: 20170403
  8. COPAXONE [Concomitant]
     Active Substance: GLATIRAMER ACETATE
     Dosage: 40 MG, 3X/WEEK
     Route: 058
  9. AMPYRA [Concomitant]
     Active Substance: DALFAMPRIDINE
     Dosage: 10 MG, 2X/DAY
     Route: 048
  10. LIORESAL [Suspect]
     Active Substance: BACLOFEN
     Dosage: 430.6 ?G, \DAY
     Route: 037
     Dates: start: 20161013
  11. LIORESAL [Suspect]
     Active Substance: BACLOFEN
     Dosage: 215.9 ?G, \DAY
     Dates: start: 20170329
  12. LIORESAL [Suspect]
     Active Substance: BACLOFEN
     Dosage: 429.9 ?G, \DAY
     Dates: start: 20170404

REACTIONS (14)
  - Drug withdrawal syndrome [Recovered/Resolved]
  - Device failure [Recovered/Resolved]
  - Formication [Recovered/Resolved]
  - Hypertonia [Recovered/Resolved]
  - Rash [Recovered/Resolved]
  - Insomnia [Recovered/Resolved]
  - Device occlusion [Recovered/Resolved]
  - Muscle spasticity [Recovered/Resolved]
  - Muscle spasms [Unknown]
  - Tremor [Recovered/Resolved]
  - Foreign body [Recovered/Resolved]
  - Anxiety [Recovered/Resolved]
  - Pruritus [Recovered/Resolved]
  - Urinary tract infection [Recovered/Resolved]

NARRATIVE: CASE EVENT DATE: 201703
